FAERS Safety Report 19771214 (Version 2)
Quarter: 2021Q3

REPORT INFORMATION
  Report Type: Spontaneous
  Country: JP (occurrence: JP)
  Receive Date: 20210831
  Receipt Date: 20210831
  Transmission Date: 20211014
  Serious: Yes (Other)
  Sender: FDA-Public Use
  Company Number: JP-PURDUE-USA-2021-0282840

PATIENT
  Age: 83 Year
  Sex: Male

DRUGS (1)
  1. NORSPAN [Suspect]
     Active Substance: BUPRENORPHINE
     Indication: CANCER PAIN
     Dosage: 10 MCG, Q1H
     Route: 062

REACTIONS (3)
  - Malignant neoplasm progression [Unknown]
  - Inadequate analgesia [Unknown]
  - Off label use [Unknown]
